FAERS Safety Report 9441477 (Version 2)
Quarter: 2013Q3

REPORT INFORMATION
  Report Type: Spontaneous
  Country: US (occurrence: US)
  Receive Date: 20130805
  Receipt Date: 20130807
  Transmission Date: 20140515
  Serious: Yes (Other)
  Sender: FDA-Public Use
  Company Number: US-PERRIGO-13US007851

PATIENT
  Age: 83 Year
  Sex: Male

DRUGS (1)
  1. ACETAMINOPHEN-ASPIRIN-CAFFEINE 6X0 [Suspect]
     Indication: PROPHYLAXIS
     Dosage: 1 TO 2 TABLETS, QD
     Route: 048
     Dates: start: 201305

REACTIONS (4)
  - Renal impairment [Unknown]
  - Off label use [Unknown]
  - Therapeutic response unexpected [Unknown]
  - Incorrect drug administration duration [Unknown]
